FAERS Safety Report 24743988 (Version 3)
Quarter: 2025Q1

REPORT INFORMATION
  Report Type: Spontaneous
  Country: TH (occurrence: TH)
  Receive Date: 20241217
  Receipt Date: 20250203
  Transmission Date: 20250409
  Serious: Yes (Other)
  Sender: MERCK
  Company Number: TH-009507513-2412THA002045

PATIENT
  Age: 83 Year
  Sex: Female

DRUGS (11)
  1. KEYTRUDA [Suspect]
     Active Substance: PEMBROLIZUMAB
     Indication: Squamous cell carcinoma of head and neck
     Dosage: 100 MILLIGRAM, Q3W; STRENGTH: 100 MG
     Route: 042
     Dates: start: 20241121, end: 20241121
  2. KEYTRUDA [Suspect]
     Active Substance: PEMBROLIZUMAB
     Dosage: 100 MILLIGRAM, Q3W; STRENGTH: 100 MG
     Route: 042
     Dates: start: 20241219, end: 20241219
  3. KEYTRUDA [Suspect]
     Active Substance: PEMBROLIZUMAB
     Dosage: 100 MILLIGRAM, Q3W
     Route: 042
     Dates: start: 20250130, end: 20250130
  4. THYROSIT [Concomitant]
     Dosage: TAKING 1 TABLET PER DAY
     Route: 048
  5. SENOLAX [Concomitant]
     Dosage: 2 TABLETS PER DAY
     Route: 048
  6. SENOLAX [Concomitant]
     Dosage: TAKING 2 TABLETS PER DAY
     Route: 048
  7. HYLES [Concomitant]
     Dosage: TAKING HALF OF 1 TABLET PER DAY
     Route: 048
  8. DIOSMIN\HESPERIDIN [Concomitant]
     Active Substance: DIOSMIN\HESPERIDIN
     Dosage: 1000 MILLIGRAM, QD; TAKING 1 TABLET PER DAY
     Route: 048
  9. DUPHALAC [Concomitant]
     Active Substance: LACTULOSE
     Dosage: TAKING 15 ML PER DAY
     Route: 048
  10. FLUIMUCIL [Concomitant]
     Active Substance: ACETYLCYSTEINE
     Dosage: 600 MILLIGRAM, BID; TAKING 2 TIMES PER DAY IN THE MORNING AND EVENING
     Route: 048
  11. ZOLPIDEM [Concomitant]
     Active Substance: ZOLPIDEM TARTRATE
     Dosage: 7.5 MILLIGRAM, QD; TAKING 3/4 OF 1 TABLET (7.5 MG) PER DAY
     Route: 048

REACTIONS (6)
  - Malignant neoplasm progression [Unknown]
  - Thrombosis [Recovered/Resolved]
  - Infected neoplasm [Not Recovered/Not Resolved]
  - Therapeutic aspiration [Unknown]
  - Pyrexia [Recovered/Resolved]
  - Off label use [Unknown]

NARRATIVE: CASE EVENT DATE: 20240101
